FAERS Safety Report 12290568 (Version 4)
Quarter: 2016Q2

REPORT INFORMATION
  Report Type: Spontaneous
  Country: US (occurrence: US)
  Receive Date: 20160421
  Receipt Date: 20160427
  Transmission Date: 20160815
  Serious: Yes (Other)
  Sender: FDA-Public Use
  Company Number: US-ACTELION PHARMACEUTICALS US, INC.-A-NJ2016-134447

PATIENT
  Age: 88 Year
  Sex: Female

DRUGS (17)
  1. DIOVAN [Concomitant]
     Active Substance: VALSARTAN
  2. ALLOPURINOL. [Concomitant]
     Active Substance: ALLOPURINOL
  3. ASPIRIN. [Concomitant]
     Active Substance: ASPIRIN
  4. FUROSEMIDE. [Concomitant]
     Active Substance: FUROSEMIDE
  5. LETAIRIS [Suspect]
     Active Substance: AMBRISENTAN
     Indication: PULMONARY HYPERTENSION
     Dosage: 10 MG, QD
     Route: 065
     Dates: start: 20080204
  6. ALDACTONE [Concomitant]
     Active Substance: SPIRONOLACTONE
  7. PREDNISONE. [Concomitant]
     Active Substance: PREDNISONE
  8. PLAVIX [Concomitant]
     Active Substance: CLOPIDOGREL BISULFATE
  9. JANUVIA [Concomitant]
     Active Substance: SITAGLIPTIN PHOSPHATE
  10. FERROUS SULFATE. [Concomitant]
     Active Substance: FERROUS SULFATE
  11. VESICARE [Concomitant]
     Active Substance: SOLIFENACIN SUCCINATE
  12. VENTAVIS [Suspect]
     Active Substance: ILOPROST
     Indication: PULMONARY ARTERIAL HYPERTENSION
     Dosage: 5 MCG, 5 X/DAILY
     Route: 055
  13. PRAVASTATIN [Concomitant]
     Active Substance: PRAVASTATIN\PRAVASTATIN SODIUM
  14. SYNTHROID [Concomitant]
     Active Substance: LEVOTHYROXINE SODIUM
  15. OMEPRAZOLE. [Concomitant]
     Active Substance: OMEPRAZOLE
  16. LYRICA [Concomitant]
     Active Substance: PREGABALIN
  17. LANTUS [Concomitant]
     Active Substance: INSULIN GLARGINE

REACTIONS (3)
  - Ejection fraction decreased [Not Recovered/Not Resolved]
  - Dyspnoea [Not Recovered/Not Resolved]
  - Cardiac resynchronisation therapy [Unknown]

NARRATIVE: CASE EVENT DATE: 20160210
